FAERS Safety Report 13245864 (Version 1)
Quarter: 2017Q1

REPORT INFORMATION
  Report Type: Spontaneous
  Country: TW (occurrence: TW)
  Receive Date: 20170217
  Receipt Date: 20170217
  Transmission Date: 20170428
  Serious: Yes (Other)
  Sender: FDA-Public Use
  Company Number: TW-PERNIX THERAPEUTICS-2016PT000243

PATIENT
  Sex: Female

DRUGS (2)
  1. CEFTIBUTEN. [Suspect]
     Active Substance: CEFTIBUTEN
     Indication: PRODUCT USED FOR UNKNOWN INDICATION
     Dosage: 2 DF, TWICE DAILY
     Route: 048
     Dates: start: 201405
  2. ACETYLCYSTEINE                     /00082802/ [Concomitant]
     Active Substance: ACETYLCYSTEINE
     Indication: PRODUCT USED FOR UNKNOWN INDICATION

REACTIONS (2)
  - Haemoglobin decreased [Unknown]
  - Red blood cell count decreased [Unknown]
